FAERS Safety Report 23906635 (Version 2)
Quarter: 2024Q4

REPORT INFORMATION
  Report Type: Spontaneous
  Country: JP (occurrence: JP)
  Receive Date: 20240528
  Receipt Date: 20241011
  Transmission Date: 20250115
  Serious: Yes (Other)
  Sender: NOVARTIS
  Company Number: JP-002147023-NVSJ2024JP006193

PATIENT
  Age: 40 Year

DRUGS (1)
  1. CANAKINUMAB [Suspect]
     Active Substance: CANAKINUMAB
     Indication: Cryopyrin associated periodic syndrome
     Dosage: 300 MG
     Route: 065

REACTIONS (4)
  - Aortitis [Unknown]
  - COVID-19 [Unknown]
  - Hepatic steatosis [Unknown]
  - Magnetic resonance imaging abnormal [Unknown]
